FAERS Safety Report 9774537 (Version 1)
Quarter: 2013Q4

REPORT INFORMATION
  Report Type: Report from Study
  Country: ES (occurrence: ES)
  Receive Date: 20131220
  Receipt Date: 20131220
  Transmission Date: 20140711
  Serious: Yes (Hospitalization)
  Sender: FDA-Public Use
  Company Number: ES-VERTEX PHARMACEUTICALS INC-2013-011911

PATIENT
  Sex: 0

DRUGS (3)
  1. TELAPREVIR [Suspect]
     Indication: HEPATITIS C
  2. INTERFERON [Concomitant]
     Indication: CHRONIC HEPATITIS C
  3. RIBAVIRIN [Concomitant]
     Indication: CHRONIC HEPATITIS C

REACTIONS (1)
  - Diabetes mellitus [Unknown]
